FAERS Safety Report 25610364 (Version 2)
Quarter: 2025Q3

REPORT INFORMATION
  Report Type: Spontaneous
  Country: EU (occurrence: EU)
  Receive Date: 20250728
  Receipt Date: 20250730
  Transmission Date: 20251021
  Serious: Yes (Other)
  Sender: AIPING PHARMACEUTICAL
  Company Number: EU-AIPING-2025AILIT00104

PATIENT
  Age: 21 Year
  Sex: Male

DRUGS (4)
  1. PREDNISONE [Suspect]
     Active Substance: PREDNISONE
     Indication: Langerhans^ cell histiocytosis
     Route: 048
     Dates: start: 201102, end: 2011
  2. PREDNISONE [Suspect]
     Active Substance: PREDNISONE
     Route: 065
     Dates: start: 201308, end: 201406
  3. VINBLASTINE [Suspect]
     Active Substance: VINBLASTINE
     Indication: Langerhans^ cell histiocytosis
     Dosage: EVERY WEEK FOR 7 WEEKS
     Route: 042
     Dates: start: 201102, end: 2011
  4. VINBLASTINE [Suspect]
     Active Substance: VINBLASTINE
     Route: 065
     Dates: start: 201308, end: 201406

REACTIONS (1)
  - Neurotoxicity [Unknown]
